FAERS Safety Report 14931057 (Version 1)
Quarter: 2018Q2

REPORT INFORMATION
  Report Type: Other
  Country: DE (occurrence: DE)
  Receive Date: 20180524
  Receipt Date: 20180524
  Transmission Date: 20180711
  Serious: No
  Sender: FDA-Public Use
  Company Number: DE-LUPIN PHARMACEUTICALS INC.-2018-01706

PATIENT
  Age: 32 Year
  Sex: Male

DRUGS (1)
  1. QUETIAPIN-HORMOSAN 25 MG FILMTABLETTEN [Suspect]
     Active Substance: QUETIAPINE
     Indication: MIDDLE INSOMNIA
     Dosage: 25 MG, PZN 9294517
     Route: 048
     Dates: start: 20171222, end: 20171228

REACTIONS (1)
  - Drug effect decreased [Recovered/Resolved]

NARRATIVE: CASE EVENT DATE: 20171222
